FAERS Safety Report 6999326-7 (Version None)
Quarter: 2010Q3

REPORT INFORMATION
  Report Type: 
  Country: None (occurrence: None)
  Receive Date: 20100920
  Receipt Date: 20100723
  Transmission Date: 20110219
  Serious: Yes (Hospitalization)
  Sender: FDA-Public Use
  Company Number: US-ASTRAZENECA-2009UW17561

PATIENT
  Age: 43 Year
  Sex: Male
  Weight: 79.4 kg

DRUGS (7)
  1. SEROQUEL [Suspect]
     Indication: BIPOLAR DISORDER
     Route: 048
     Dates: start: 20050101, end: 20090501
  2. SEROQUEL [Suspect]
     Route: 048
     Dates: start: 20090326
  3. ABILIFY [Concomitant]
     Dosage: 5 MG TO 10 MG DAILY
     Dates: start: 20090326
  4. TOPAMAX [Concomitant]
     Dosage: 25 MG QHS, 25 MG BID
     Dates: start: 20090326
  5. TRAZODONE HCL [Concomitant]
     Dosage: 50 MG TO 100 MG
     Dates: start: 20090619
  6. BUPROPION HCL [Concomitant]
     Dosage: 150 MG Q AM
     Dates: start: 20090619
  7. REMERON [Concomitant]
     Dosage: 15 MG QHS
     Dates: start: 20091203

REACTIONS (3)
  - KETOACIDOSIS [None]
  - TYPE 1 DIABETES MELLITUS [None]
  - WEIGHT INCREASED [None]
